FAERS Safety Report 4395184-8 (Version None)
Quarter: 2004Q3

REPORT INFORMATION
  Report Type: 
  Country: None (occurrence: None)
  Receive Date: 20040706
  Receipt Date: 20040701
  Transmission Date: 20050211
  Serious: Yes (Hospitalization)
  Sender: FDA-Public Use
  Company Number: MAG-2004-0000242

PATIENT
  Age: 43 Year
  Sex: Male

DRUGS (2)
  1. POVIDONE IODINE [Suspect]
     Indication: CELLULITIS
     Dosage: TOPICAL
     Route: 061
  2. ACRINOL (ETHACRIDINE) [Suspect]

REACTIONS (1)
  - DERMATITIS CONTACT [None]
